FAERS Safety Report 20004047 (Version 1)
Quarter: 2021Q4

REPORT INFORMATION
  Report Type: Spontaneous
  Country: GB (occurrence: GB)
  Receive Date: 20211027
  Receipt Date: 20211027
  Transmission Date: 20220303
  Serious: Yes (Other)
  Sender: FDA-Public Use
  Company Number: GB-BAYER-2021A231340

PATIENT

DRUGS (1)
  1. AFLIBERCEPT [Suspect]
     Active Substance: AFLIBERCEPT
     Dosage: UNK
     Route: 065

REACTIONS (1)
  - Non-infectious endophthalmitis [Unknown]

NARRATIVE: CASE EVENT DATE: 20211001
